FAERS Safety Report 20746207 (Version 4)
Quarter: 2024Q1

REPORT INFORMATION
  Report Type: Spontaneous
  Country: US (occurrence: US)
  Receive Date: 20220425
  Receipt Date: 20240318
  Transmission Date: 20240410
  Serious: No
  Sender: FDA-Public Use
  Company Number: US-PFIZER INC-202200553355

PATIENT
  Age: 67 Year
  Sex: Male

DRUGS (2)
  1. INLYTA [Suspect]
     Active Substance: AXITINIB
     Dosage: UNK
     Dates: start: 20201201
  2. INLYTA [Suspect]
     Active Substance: AXITINIB
     Dosage: ONLY TAKING THEIR INLYTA DURING THE WEEK

REACTIONS (5)
  - Pain in extremity [Not Recovered/Not Resolved]
  - Headache [Unknown]
  - Pain [Unknown]
  - Hyperkeratosis [Unknown]
  - Stomatitis [Unknown]
